FAERS Safety Report 7216049-X (Version None)
Quarter: 2011Q1

REPORT INFORMATION
  Report Type: 
  Country: None (occurrence: None)
  Receive Date: 20110105
  Receipt Date: 20110105
  Transmission Date: 20110831
  Serious: No
  Sender: FDA-Public Use
  Company Number: None

PATIENT
  Age: 7 Year
  Sex: Female
  Weight: 22 kg

DRUGS (1)
  1. SNGULAIR CHEWABLE 5 MG  EVERY DAILY ORAL [Suspect]
     Indication: ASTHMA
     Dosage: 5 MG  ONCE DAILY ORAL
     Route: 048
     Dates: start: 20101025, end: 20101225

REACTIONS (7)
  - BODY TEMPERATURE INCREASED [None]
  - VOMITING [None]
  - ABDOMINAL PAIN [None]
  - HYPOAESTHESIA [None]
  - HEADACHE [None]
  - EAR INFECTION [None]
  - DECREASED APPETITE [None]
